FAERS Safety Report 4564038-6 (Version None)
Quarter: 2005Q1

REPORT INFORMATION
  Report Type: 
  Country: None (occurrence: None)
  Receive Date: 20050128
  Receipt Date: 20040721
  Transmission Date: 20050727
  Serious: No
  Sender: FDA-Public Use
  Company Number: US-BRISTOL-MYERS SQUIBB COMPANY-12648549

PATIENT
  Age: 5 Year
  Sex: Male

DRUGS (1)
  1. CEFZIL [Suspect]
     Indication: SINUSITIS
     Route: 048
     Dates: start: 20040701

REACTIONS (1)
  - TOOTH DISCOLOURATION [None]
